FAERS Safety Report 6302735-2 (Version None)
Quarter: 2009Q3

REPORT INFORMATION
  Report Type: 
  Country: None (occurrence: None)
  Receive Date: 20090810
  Receipt Date: 20090728
  Transmission Date: 20100115
  Serious: Yes (Other)
  Sender: FDA-Public Use
  Company Number: US-BAYER-200912507BCC

PATIENT
  Age: 37 Year
  Sex: Female
  Weight: 73 kg

DRUGS (1)
  1. MIDOL PM CAPLETS [Suspect]
     Indication: MENSTRUAL DISORDER
     Route: 048
     Dates: start: 20090601

REACTIONS (5)
  - AGITATION [None]
  - DYSMENORRHOEA [None]
  - NAUSEA [None]
  - NERVOUSNESS [None]
  - SOMNOLENCE [None]
